FAERS Safety Report 9927751 (Version 1)
Quarter: 2014Q1

REPORT INFORMATION
  Report Type: Spontaneous
  Country: MX (occurrence: MX)
  Receive Date: 20140227
  Receipt Date: 20140227
  Transmission Date: 20141002
  Serious: Yes (Death, Hospitalization)
  Sender: FDA-Public Use
  Company Number: MX-ACTELION-A-CH2014-95292

PATIENT
  Age: 13 Year
  Sex: Female
  Weight: 32 kg

DRUGS (2)
  1. TRACLEER [Suspect]
     Indication: PULMONARY ARTERIAL HYPERTENSION
     Dosage: 32.25 MG, BID
     Route: 048
     Dates: start: 2010, end: 20140207
  2. SILDENAFIL [Concomitant]

REACTIONS (7)
  - Septic shock [Fatal]
  - Haemodynamic instability [Fatal]
  - Leukopenia [Unknown]
  - Oral candidiasis [Unknown]
  - Tonsillitis [Unknown]
  - Basedow^s disease [Unknown]
  - Hyperthyroidism [Unknown]
